FAERS Safety Report 4888754-1 (Version None)
Quarter: 2005Q4

REPORT INFORMATION
  Report Type: 
  Country: None (occurrence: None)
  Receive Date: 20051216
  Receipt Date: 20050906
  Transmission Date: 20060501
  Serious: No
  Sender: FDA-Public Use
  Company Number: USA0509107668

PATIENT
  Age: 58 Year
  Sex: Male

DRUGS (3)
  1. CIALIS [Suspect]
     Indication: ERECTILE DYSFUNCTION
     Dosage: 20 MG
     Dates: start: 20050826
  2. ADVAIR DISKUS 100/50 [Concomitant]
  3. PROVENTIL HFA (SALBUTAMOL) [Concomitant]

REACTIONS (1)
  - NASOPHARYNGITIS [None]
